FAERS Safety Report 6150233-1 (Version None)
Quarter: 2009Q2

REPORT INFORMATION
  Report Type: 
  Country: None (occurrence: None)
  Receive Date: 20090407
  Receipt Date: 20090327
  Transmission Date: 20091009
  Serious: Yes (Death, Hospitalization)
  Sender: FDA-Public Use
  Company Number: WAES 0805USA04558

PATIENT
  Age: 78 Year
  Sex: Female

DRUGS (18)
  1. CAP VORINOSTAT [Suspect]
     Indication: NON-SMALL CELL LUNG CANCER
     Dosage: 400 MG/DAILY PO
     Route: 048
     Dates: start: 20080510, end: 20080516
  2. CAP VORINOSTAT [Suspect]
     Indication: NON-SMALL CELL LUNG CANCER
     Dosage: 400 MG/DAILY PO
     Route: 048
     Dates: start: 20080611, end: 20080621
  3. CAP VORINOSTAT [Suspect]
     Indication: NON-SMALL CELL LUNG CANCER
     Dosage: 400 MG/DAILY PO
     Route: 048
     Dates: start: 20080716, end: 20080729
  4. CARBOPLATIN [Suspect]
     Indication: NON-SMALL CELL LUNG CANCER
     Dosage: 539 MG/1X IV, 455 MG/1X IV, 377 MG/1X IV
     Route: 042
     Dates: start: 20080514, end: 20080514
  5. CARBOPLATIN [Suspect]
     Indication: NON-SMALL CELL LUNG CANCER
     Dosage: 539 MG/1X IV, 455 MG/1X IV, 377 MG/1X IV
     Route: 042
     Dates: start: 20080611, end: 20080611
  6. CARBOPLATIN [Suspect]
     Indication: NON-SMALL CELL LUNG CANCER
     Dosage: 539 MG/1X IV, 455 MG/1X IV, 377 MG/1X IV
     Route: 042
     Dates: start: 20080716, end: 20080716
  7. PACLITAXEL [Suspect]
     Indication: NON-SMALL CELL LUNG CANCER
     Dosage: 324.6 MG/1X IV, 270 MG/1X IV, 227 MG/1X IV
     Route: 042
     Dates: start: 20080514, end: 20080514
  8. PACLITAXEL [Suspect]
     Indication: NON-SMALL CELL LUNG CANCER
     Dosage: 324.6 MG/1X IV, 270 MG/1X IV, 227 MG/1X IV
     Route: 042
     Dates: start: 20080611, end: 20080611
  9. PACLITAXEL [Suspect]
     Indication: NON-SMALL CELL LUNG CANCER
     Dosage: 324.6 MG/1X IV, 270 MG/1X IV, 227 MG/1X IV
     Route: 042
     Dates: start: 20080716, end: 20080716
  10. AMIKACIN [Concomitant]
  11. AMLODIPINE [Concomitant]
  12. CAPTOPRIL [Concomitant]
  13. CEFTAZIDIME [Concomitant]
  14. CEFTRIAXONE SODIUM [Concomitant]
  15. CHLORPHENIRAMINE MALEATE [Concomitant]
  16. DEXAMETHASONE TAB [Concomitant]
  17. ONDANSETRON [Concomitant]
  18. RANITIDINE [Concomitant]

REACTIONS (9)
  - ACUTE RESPIRATORY DISTRESS SYNDROME [None]
  - ASTHENIA [None]
  - ATRIAL FIBRILLATION [None]
  - FLUID RETENTION [None]
  - GENERAL PHYSICAL HEALTH DETERIORATION [None]
  - NEUTROPENIA [None]
  - PLEURAL EFFUSION [None]
  - PNEUMONIA [None]
  - PULMONARY EMBOLISM [None]
